FAERS Safety Report 23350027 (Version 2)
Quarter: 2024Q3

REPORT INFORMATION
  Report Type: Spontaneous
  Country: US (occurrence: US)
  Receive Date: 20231229
  Receipt Date: 20240902
  Transmission Date: 20241017
  Serious: Yes (Hospitalization, Other)
  Sender: ASTELLAS
  Company Number: US-ASTELLAS-2023US026753

PATIENT
  Sex: Male

DRUGS (2)
  1. ENFORTUMAB VEDOTIN [Suspect]
     Active Substance: ENFORTUMAB VEDOTIN
     Indication: Bladder cancer
     Dosage: UNK UNK, UNKNOWN FREQ. (TWO DOSES OR TWO CYCLES)
     Route: 065
  2. PEMBROLIZUMAB [Suspect]
     Active Substance: PEMBROLIZUMAB
     Indication: Product used for unknown indication
     Dosage: UNK UNK, UNKNOWN FREQ. (TWO DOSES)
     Route: 065

REACTIONS (1)
  - Toxic epidermal necrolysis [Recovered/Resolved]
